FAERS Safety Report 25373268 (Version 2)
Quarter: 2025Q2

REPORT INFORMATION
  Report Type: Spontaneous
  Country: JP (occurrence: JP)
  Receive Date: 20250529
  Receipt Date: 20250627
  Transmission Date: 20250717
  Serious: Yes (Other)
  Sender: MERCK SHARP & DOHME LLC
  Company Number: JP-009507513-2288968

PATIENT
  Age: 8 Decade
  Sex: Male

DRUGS (3)
  1. KEYTRUDA [Suspect]
     Active Substance: PEMBROLIZUMAB
     Indication: Non-small cell lung cancer stage IV
     Dosage: STRENGTH: 100 MG, DOSE: 200 MG, FREQUENCY: Q3W
     Route: 041
  2. CARBOPLATIN [Concomitant]
     Active Substance: CARBOPLATIN
     Route: 041
  3. PEMETREXED [Concomitant]
     Active Substance: PEMETREXED
     Route: 041

REACTIONS (2)
  - Neoplasm recurrence [Unknown]
  - Pneumonitis [Unknown]
